FAERS Safety Report 20013338 (Version 1)
Quarter: 2021Q4

REPORT INFORMATION
  Report Type: Spontaneous
  Country: CN (occurrence: CN)
  Receive Date: 20211029
  Receipt Date: 20211029
  Transmission Date: 20220303
  Serious: Yes (Other)
  Sender: FDA-Public Use
  Company Number: CN-PFIZER INC-202101419049

PATIENT
  Age: 39 Year
  Sex: Male
  Weight: 52 kg

DRUGS (3)
  1. CYTARABINE [Suspect]
     Active Substance: CYTARABINE
     Indication: B-cell lymphoma
     Dosage: 3 G, 2X/DAY
     Route: 041
     Dates: start: 20211014, end: 20211014
  2. RITUXIMAB [Suspect]
     Active Substance: RITUXIMAB
     Indication: B-cell lymphoma
     Dosage: 600 MG, 1X/DAY
     Route: 041
     Dates: start: 20211012, end: 20211012
  3. CISPLATIN [Suspect]
     Active Substance: CISPLATIN
     Indication: B-cell lymphoma
     Dosage: 150.000 MG, 1X/DAY
     Route: 041
     Dates: start: 20211013, end: 20211013

REACTIONS (2)
  - Gastrointestinal disorder [Recovering/Resolving]
  - Dizziness [Recovering/Resolving]

NARRATIVE: CASE EVENT DATE: 20211014
